FAERS Safety Report 4349754-3 (Version None)
Quarter: 2004Q2

REPORT INFORMATION
  Report Type: 
  Country: None (occurrence: None)
  Receive Date: 20040426
  Receipt Date: 20040416
  Transmission Date: 20050107
  Serious: Yes (Other)
  Sender: FDA-Public Use
  Company Number: HQWYE517619APR04

PATIENT
  Sex: Female

DRUGS (2)
  1. PROTONIX [Suspect]
     Indication: EROSIVE OESOPHAGITIS
     Dosage: ORAL
     Route: 048
     Dates: end: 20020201
  2. PROTONIX [Suspect]
     Indication: OESOPHAGITIS
     Dosage: ORAL
     Route: 048
     Dates: end: 20020201

REACTIONS (3)
  - CAESAREAN SECTION [None]
  - COMPLICATIONS OF MATERNAL EXPOSURE TO THERAPEUTIC DRUGS [None]
  - OLIGOHYDRAMNIOS [None]
